FAERS Safety Report 20216409 (Version 3)
Quarter: 2022Q2

REPORT INFORMATION
  Report Type: Spontaneous
  Country: GB (occurrence: GB)
  Receive Date: 20211222
  Receipt Date: 20220615
  Transmission Date: 20220720
  Serious: Yes (Hospitalization)
  Sender: FDA-Public Use
  Company Number: GB-MYLANLABS-2020M1075335

PATIENT
  Age: 97 Year
  Sex: Male

DRUGS (1)
  1. CLOZARIL [Suspect]
     Active Substance: CLOZAPINE
     Indication: Product used for unknown indication
     Dosage: UNK
     Route: 048
     Dates: start: 20190919

REACTIONS (7)
  - Hospitalisation [Unknown]
  - Full blood count abnormal [Unknown]
  - Haemoglobin increased [Unknown]
  - Differential white blood cell count abnormal [Recovering/Resolving]
  - Platelet count increased [Unknown]
  - Haematocrit decreased [Recovering/Resolving]
  - Red blood cell count decreased [Unknown]

NARRATIVE: CASE EVENT DATE: 20200825
